FAERS Safety Report 19062771 (Version 1)
Quarter: 2021Q1

REPORT INFORMATION
  Report Type: Report from Study
  Country: EG (occurrence: EG)
  Receive Date: 20210326
  Receipt Date: 20210326
  Transmission Date: 20210420
  Serious: Yes (Death)
  Sender: FDA-Public Use
  Company Number: NVSC2021EG069671

PATIENT
  Age: 53 Year
  Sex: Male

DRUGS (3)
  1. ENTRESTO [Suspect]
     Active Substance: SACUBITRIL\VALSARTAN
     Indication: CARDIAC FAILURE
     Dosage: 0.5 DF (50MG), BID
     Route: 065
     Dates: start: 201703
  2. ENTRESTO [Suspect]
     Active Substance: SACUBITRIL\VALSARTAN
     Dosage: UNK UNK, UNKNOWN (GRADUAL INCREASE)
     Route: 065
  3. ENTRESTO [Suspect]
     Active Substance: SACUBITRIL\VALSARTAN
     Dosage: 100 MG, BID
     Route: 065

REACTIONS (4)
  - Hypotension [Fatal]
  - Prescribed underdose [Unknown]
  - Wrong technique in product usage process [Unknown]
  - Hypersensitivity [Fatal]

NARRATIVE: CASE EVENT DATE: 201703
